FAERS Safety Report 10638561 (Version 2)
Quarter: 2015Q1

REPORT INFORMATION
  Report Type: Spontaneous
  Country: CA (occurrence: CA)
  Receive Date: 20141208
  Receipt Date: 20150319
  Transmission Date: 20150720
  Serious: Yes (Other)
  Sender: FDA-Public Use
  Company Number: CA-SA-2014SA166421

PATIENT
  Sex: Female

DRUGS (5)
  1. ERGOCALCIFEROL. [Concomitant]
     Active Substance: ERGOCALCIFEROL
  2. TAXOTERE [Suspect]
     Active Substance: DOCETAXEL
     Dosage: FORM: SOLUTION INTRAVENOUS
     Route: 042
  3. PERJETA [Suspect]
     Active Substance: PERTUZUMAB
     Dosage: STRENGTH AND FORM: 14 ML VIAL CONCENTRATE SOLUTION
     Route: 042
  4. HERCEPTIN [Suspect]
     Active Substance: TRASTUZUMAB
     Dosage: FORM:POWDER FOR SOLUTION
     Route: 042
  5. COVERSYL [Concomitant]
     Active Substance: PERINDOPRIL

REACTIONS (10)
  - Dyspnoea exertional [Unknown]
  - Hot flush [Unknown]
  - Hypoacusis [Unknown]
  - Neuralgia [Unknown]
  - Fatigue [Unknown]
  - Hyperhidrosis [Unknown]
  - Vomiting [Unknown]
  - Cough [Unknown]
  - Dry mouth [Unknown]
  - Pain in extremity [Unknown]
